FAERS Safety Report 18735423 (Version 1)
Quarter: 2021Q1

REPORT INFORMATION
  Report Type: Report from Study
  Country: GB (occurrence: GB)
  Receive Date: 20210113
  Receipt Date: 20210113
  Transmission Date: 20210419
  Serious: Yes (Hospitalization)
  Sender: FDA-Public Use
  Company Number: GB-JNJFOC-20190529401

PATIENT
  Age: 4 Decade
  Sex: Female

DRUGS (2)
  1. STELARA [Suspect]
     Active Substance: USTEKINUMAB
     Indication: PSORIASIS
     Route: 058
     Dates: start: 20180216
  2. STELARA [Suspect]
     Active Substance: USTEKINUMAB

REACTIONS (4)
  - Psoriasis [Unknown]
  - Erythema nodosum [Unknown]
  - Inappropriate schedule of product administration [Unknown]
  - Tonsillitis [Unknown]

NARRATIVE: CASE EVENT DATE: 2019
